FAERS Safety Report 5386182-6 (Version None)
Quarter: 2007Q3

REPORT INFORMATION
  Report Type: 
  Country: None (occurrence: None)
  Receive Date: 20070710
  Receipt Date: 20070710
  Transmission Date: 20080115
  Serious: Yes (Hospitalization)
  Sender: FDA-Public Use
  Company Number: None

PATIENT
  Age: 77 Year
  Sex: Male
  Weight: 96 kg

DRUGS (12)
  1. NAFCILLIN SODIUM [Suspect]
     Indication: OSTEOMYELITIS
     Dosage: 2GM OTHER IV
     Route: 042
     Dates: start: 20070407, end: 20070420
  2. ACETAMINOPHEN [Concomitant]
  3. ALOH/MGOH/SIMTH REG STRENGTH [Concomitant]
  4. ATENOLOL [Concomitant]
  5. CETYLPYRIDINIUM/MENTHOL LOZENGE [Concomitant]
  6. CIPROFLOXACIN [Concomitant]
  7. COLCHICINE [Concomitant]
  8. HEPARIN [Concomitant]
  9. HYDRALAZINE HCL [Concomitant]
  10. HUMULIN 70/30 [Concomitant]
  11. INSULIN HUMAN -REG- [Concomitant]
  12. LISINOPRIL [Concomitant]

REACTIONS (4)
  - BLOOD POTASSIUM DECREASED [None]
  - DRUG DISPENSING ERROR [None]
  - RENAL FAILURE [None]
  - WRONG DRUG ADMINISTERED [None]
